FAERS Safety Report 8234876-7 (Version None)
Quarter: 2012Q1

REPORT INFORMATION
  Report Type: 
  Country: None (occurrence: None)
  Receive Date: 20120326
  Receipt Date: 20120315
  Transmission Date: 20120608
  Serious: Yes (Hospitalization, Other)
  Sender: FDA-Public Use
  Company Number: US-ELI_LILLY_AND_COMPANY-US201203005188

PATIENT
  Sex: Female

DRUGS (15)
  1. CHOLESTYRAMINE [Concomitant]
  2. BETHANECHOL [Concomitant]
     Dosage: 3 DF, QD
  3. ENOXAPARIN [Concomitant]
     Dosage: 40 MG, UNK
  4. CALCIUM CARBONATE [Concomitant]
  5. VANCOMYCIN HCL [Concomitant]
  6. FORTEO [Suspect]
     Dosage: 20 UG, QD
     Dates: end: 20120301
  7. FOLBIC [Concomitant]
  8. VITAMIN D [Concomitant]
     Dosage: 5000 IU, WEEKLY (1/W)
  9. MULTI-VITAMIN [Concomitant]
  10. OXYBUTYNIN [Concomitant]
  11. SULFAMETHOXYPYRIDAZINE [Concomitant]
  12. ACETAMINOPHEN [Concomitant]
  13. ONDANSETRON [Concomitant]
  14. FORTEO [Suspect]
     Indication: OSTEOPOROSIS
     Dosage: 20 UG, QD
     Dates: start: 20110623
  15. MIRTAZAPINE [Concomitant]

REACTIONS (8)
  - CLOSTRIDIAL INFECTION [None]
  - MALAISE [None]
  - DRUG DOSE OMISSION [None]
  - PYREXIA [None]
  - NEUROGENIC BLADDER [None]
  - SEPSIS [None]
  - URINARY RETENTION [None]
  - URINARY TRACT INFECTION [None]
